FAERS Safety Report 16212773 (Version 1)
Quarter: 2019Q2

REPORT INFORMATION
  Report Type: Spontaneous
  Country: CA (occurrence: CA)
  Receive Date: 20190418
  Receipt Date: 20190418
  Transmission Date: 20190711
  Serious: Yes (Life-Threatening)
  Sender: FDA-Public Use
  Company Number: CA-FRESENIUS KABI-FK201904337

PATIENT
  Age: 6 Year
  Sex: Female
  Weight: 22 kg

DRUGS (2)
  1. METHYLPREDNISOLONE (MANUFACTURER UNKNOWN) [Suspect]
     Active Substance: METHYLPREDNISOLONE
     Indication: ACUTE DISSEMINATED ENCEPHALOMYELITIS
     Route: 042
  2. PREDNISONE. [Suspect]
     Active Substance: PREDNISONE
     Indication: PRODUCT USED FOR UNKNOWN INDICATION

REACTIONS (3)
  - Coagulopathy [Recovered/Resolved]
  - Haemorrhage intracranial [Recovered/Resolved with Sequelae]
  - Haemorrhagic stroke [Recovered/Resolved with Sequelae]
